FAERS Safety Report 22954803 (Version 4)
Quarter: 2024Q3

REPORT INFORMATION
  Report Type: Report from Study
  Country: AR (occurrence: AR)
  Receive Date: 20230918
  Receipt Date: 20240806
  Transmission Date: 20241016
  Serious: Yes (Life-Threatening, Other)
  Sender: NOVARTIS
  Company Number: AR-002147023-NVSC2023AR200653

PATIENT
  Age: 64 Year
  Sex: Male

DRUGS (1)
  1. MAYZENT [Suspect]
     Active Substance: SIPONIMOD
     Indication: Multiple sclerosis
     Dosage: 2 MG, QD
     Route: 065
     Dates: start: 20230324

REACTIONS (15)
  - Suicidal ideation [Unknown]
  - Monoplegia [Unknown]
  - Choking [Unknown]
  - Fatigue [Unknown]
  - Dysphagia [Unknown]
  - Paraesthesia [Unknown]
  - Depression [Unknown]
  - Agitation [Unknown]
  - Poor peripheral circulation [Unknown]
  - Musculoskeletal stiffness [Unknown]
  - Asthenia [Unknown]
  - Gait inability [Unknown]
  - Chronic obstructive pulmonary disease [Unknown]
  - Hypertension [Unknown]
  - Product administration interrupted [Unknown]

NARRATIVE: CASE EVENT DATE: 20230324
